FAERS Safety Report 24887443 (Version 1)
Quarter: 2025Q1

REPORT INFORMATION
  Report Type: Spontaneous
  Country: CA (occurrence: CA)
  Receive Date: 20250127
  Receipt Date: 20250127
  Transmission Date: 20250409
  Serious: Yes (Hospitalization, Other)
  Sender: CURRAX PHARMACEUTICALS
  Company Number: CA-CURRAX PHARMACEUTICALS LLC-CA-2025CUR000187

PATIENT
  Age: 47 Year
  Sex: Female

DRUGS (16)
  1. DOXEPIN [Interacting]
     Active Substance: DOXEPIN
     Indication: Major depression
     Dosage: 100 MG (100 MG,1 IN 1 D)
     Route: 065
  2. DOXEPIN [Interacting]
     Active Substance: DOXEPIN
     Dosage: 150 MG (150 MG,1 IN 1 D)
     Route: 065
  3. DOXEPIN [Interacting]
     Active Substance: DOXEPIN
     Dosage: DOSE: 50 MG (50 MG) 1 EVERY 1 DAYS 1
     Route: 065
  4. VALPROIC ACID [Interacting]
     Active Substance: VALPROIC ACID
     Indication: Affective disorder
     Route: 065
  5. RISPERIDONE [Interacting]
     Active Substance: RISPERIDONE
     Indication: Affective disorder
     Route: 065
  6. QUETIAPINE FUMARATE [Suspect]
     Active Substance: QUETIAPINE FUMARATE
     Indication: Product used for unknown indication
     Dosage: 100 MG (100 MG,1 IN 1 D)
     Route: 065
  7. LORAZEPAM [Interacting]
     Active Substance: LORAZEPAM
     Indication: Withdrawal syndrome
     Route: 065
  8. CYCLOBENZAPRINE HYDROCHLORIDE [Suspect]
     Active Substance: CYCLOBENZAPRINE HYDROCHLORIDE
     Indication: Pain
     Route: 048
  9. GABAPENTIN [Suspect]
     Active Substance: GABAPENTIN
     Indication: Pain
     Route: 065
  10. METHADONE HYDROCHLORIDE [Suspect]
     Active Substance: METHADONE HYDROCHLORIDE
     Indication: Drug use disorder
     Dosage: 75 MG (75 MG,1 IN 1 D)
     Route: 065
  11. ATENOLOL [Concomitant]
     Active Substance: ATENOLOL
     Indication: Hypertension
  12. ALBUTEROL SULFATE [Concomitant]
     Active Substance: ALBUTEROL SULFATE
     Indication: Chronic obstructive pulmonary disease
  13. NAPROXEN SODIUM [Concomitant]
     Active Substance: NAPROXEN SODIUM
     Indication: Pain
  14. FUROSEMIDE [Concomitant]
     Active Substance: FUROSEMIDE
     Indication: Oedema peripheral
     Dosage: 40 MG (40 MG,1 IN 1 D)
  15. ESTRADIOL [Concomitant]
     Active Substance: ESTRADIOL
     Indication: Endometriosis
     Dosage: 0.5 MG (0.5 MG,1 IN 1 D)
  16. SPIRIVA [Concomitant]
     Active Substance: TIOTROPIUM BROMIDE MONOHYDRATE
     Indication: Chronic obstructive pulmonary disease
     Dosage: 5 MCG (5 MCG,1 IN 1 D)

REACTIONS (4)
  - Respiratory depression [Recovering/Resolving]
  - Depressed level of consciousness [Recovering/Resolving]
  - Toxicity to various agents [Recovering/Resolving]
  - Drug interaction [Recovering/Resolving]
